FAERS Safety Report 8799061 (Version 2)
Quarter: 2012Q4

REPORT INFORMATION
  Report Type: Report from Study
  Country: JP (occurrence: JP)
  Receive Date: 20120920
  Receipt Date: 20121009
  Transmission Date: 20130627
  Serious: Yes (Other)
  Sender: FDA-Public Use
  Company Number: JP-JNJFOC-20120811424

PATIENT
  Age: 65 Year
  Sex: Female
  Weight: 59 kg

DRUGS (17)
  1. SIMPONI [Suspect]
     Indication: RHEUMATOID ARTHRITIS
     Route: 058
     Dates: start: 20120614
  2. SIMPONI [Suspect]
     Indication: RHEUMATOID ARTHRITIS
     Route: 058
     Dates: start: 20120705, end: 20120705
  3. UNKNOWN MEDICATION [Concomitant]
  4. HUMALOG [Concomitant]
     Indication: DIABETES MELLITUS
     Route: 058
  5. METHOTREXATE [Concomitant]
     Indication: RHEUMATOID ARTHRITIS
     Dates: end: 20120705
  6. TACROLIMUS HYDRATE [Concomitant]
     Indication: RHEUMATOID ARTHRITIS
     Dates: end: 20120705
  7. LORNOXICAM [Concomitant]
     Indication: RHEUMATOID ARTHRITIS
     Route: 048
     Dates: end: 20120705
  8. ISONIAZID [Concomitant]
     Indication: PROPHYLAXIS
     Route: 048
  9. SODIUM RABEPRAZOLE [Concomitant]
     Indication: GASTROOESOPHAGEAL REFLUX DISEASE
     Route: 048
  10. AMLODIPINE BESILATE [Concomitant]
     Indication: HYPERTENSION
     Route: 048
  11. CARVEDILOL [Concomitant]
     Indication: HYPERTENSION
     Route: 048
  12. SULPIRIDE [Concomitant]
     Indication: DYSTHYMIC DISORDER
     Route: 048
  13. ZOLPIDEM [Concomitant]
     Indication: INSOMNIA
     Route: 048
  14. LORAZEPAM [Concomitant]
     Indication: ANXIETY DISORDER
     Route: 048
  15. BLADDERON [Concomitant]
     Route: 048
  16. ZOPLICONE [Concomitant]
     Indication: INSOMNIA
  17. RISPERDAL [Concomitant]
     Indication: SCHIZOPHRENIA
     Route: 048

REACTIONS (2)
  - Pancreatic carcinoma [Recovering/Resolving]
  - Intestinal obstruction [Recovering/Resolving]
